FAERS Safety Report 10596921 (Version 1)
Quarter: 2014Q4

REPORT INFORMATION
  Report Type: Spontaneous
  Country: CH (occurrence: CH)
  Receive Date: 20141120
  Receipt Date: 20141120
  Transmission Date: 20150529
  Serious: Yes (Hospitalization)
  Sender: FDA-Public Use
  Company Number: CH-ASTRAZENECA-2014SE86280

PATIENT
  Age: 88 Year
  Sex: Male
  Weight: 66.5 kg

DRUGS (7)
  1. ALLOPUR 300 MG TABLETTEN [Concomitant]
     Route: 048
  2. LUCRIN DEPOT (NON AZ) [Suspect]
     Active Substance: LEUPROLIDE ACETATE
     Route: 058
     Dates: start: 20140901
  3. CASODEX [Suspect]
     Active Substance: BICALUTAMIDE
     Route: 048
     Dates: start: 20140901
  4. ZANIDIP [Concomitant]
     Active Substance: LERCANIDIPINE HYDROCHLORIDE
     Route: 048
  5. CANDESARTAN [Concomitant]
     Active Substance: CANDESARTAN
     Route: 048
  6. TOREM 5 TABLETTEN [Concomitant]
     Route: 048
  7. SINTROM 1 MITIS TABLETTEN [Concomitant]
     Route: 048

REACTIONS (8)
  - Pleural disorder [Unknown]
  - Ascites [Recovered/Resolved]
  - Weight increased [Recovered/Resolved]
  - Cardiac failure acute [Recovered/Resolved]
  - Pneumonia [Unknown]
  - Pulmonary hypertension [Unknown]
  - Generalised oedema [Recovered/Resolved]
  - Tricuspid valve incompetence [Unknown]

NARRATIVE: CASE EVENT DATE: 201409
